FAERS Safety Report 9294797 (Version 1)
Quarter: 2013Q2

REPORT INFORMATION
  Report Type: Spontaneous
  Country: US (occurrence: None)
  Receive Date: 20130516
  Receipt Date: 20130516
  Transmission Date: 20140414
  Serious: Yes (Other)
  Sender: FDA-Public Use
  Company Number: None

PATIENT
  Age: 74 Year
  Sex: Female
  Weight: 42.64 kg

DRUGS (1)
  1. PTATLOPIUM BROMED + ALBUTEROL 550-513 MG LIPLA (WATSON) [Suspect]
     Indication: EMPHYSEMA
     Dates: start: 20130425, end: 20130506

REACTIONS (3)
  - Dizziness [None]
  - Dyspnoea [None]
  - Blood pressure increased [None]
